FAERS Safety Report 5403349-9 (Version None)
Quarter: 2007Q3

REPORT INFORMATION
  Report Type: 
  Country: None (occurrence: None)
  Receive Date: 20070801
  Receipt Date: 20070722
  Transmission Date: 20080115
  Serious: Yes (Life-Threatening)
  Sender: FDA-Public Use
  Company Number: DE-GENENTECH-243798

PATIENT
  Sex: Female
  Weight: 74 kg

DRUGS (4)
  1. RITUXAN [Suspect]
     Indication: WEGENER'S GRANULOMATOSIS
     Dosage: 1000 MG, UNK
     Route: 042
     Dates: start: 20061221
  2. PREDNISOLONE [Concomitant]
     Indication: WEGENER'S GRANULOMATOSIS
     Dosage: 300 MG, QD
     Dates: start: 20070110
  3. CYCLOPHOSPHAMIDE [Concomitant]
     Indication: WEGENER'S GRANULOMATOSIS
     Dosage: 500 MG, QD
     Dates: start: 20060927, end: 20060927
  4. ADALIMUMAB [Concomitant]
     Indication: WEGENER'S GRANULOMATOSIS
     Dosage: 40 MG, Q2W
     Route: 058
     Dates: start: 20060801

REACTIONS (1)
  - PROGRESSIVE MULTIFOCAL LEUKOENCEPHALOPATHY [None]
